FAERS Safety Report 11468332 (Version 1)
Quarter: 2015Q3

REPORT INFORMATION
  Report Type: Spontaneous
  Country: US (occurrence: None)
  Receive Date: 20150904
  Receipt Date: 20150904
  Transmission Date: 20151125
  Serious: Yes (Other)
  Sender: FDA-Public Use
  Company Number: None

PATIENT
  Age: 47 Year
  Sex: Female
  Weight: 54.43 kg

DRUGS (4)
  1. TAMOXIFEN [Suspect]
     Active Substance: TAMOXIFEN
     Indication: BREAST CANCER
     Dosage: 1 PILL
     Route: 048
     Dates: start: 20150317, end: 20150627
  2. BIOTIN [Concomitant]
     Active Substance: BIOTIN
  3. VITAMIN D [Concomitant]
     Active Substance: CHOLECALCIFEROL
  4. FLAXSEED [Concomitant]
     Active Substance: FLAX SEED

REACTIONS (6)
  - Toxicity to various agents [None]
  - Product label issue [None]
  - Emotional disorder [None]
  - Photosensitivity reaction [None]
  - Injury [None]
  - Skin disorder [None]

NARRATIVE: CASE EVENT DATE: 20150627
